FAERS Safety Report 13054645 (Version 3)
Quarter: 2017Q1

REPORT INFORMATION
  Report Type: Spontaneous
  Country: US (occurrence: US)
  Receive Date: 20161222
  Receipt Date: 20170120
  Transmission Date: 20170428
  Serious: Yes (Hospitalization, Other)
  Sender: FDA-Public Use
  Company Number: US-SAOL THERAPEUTICS-2016SAO01170

PATIENT
  Age: 35 Year
  Sex: Female

DRUGS (4)
  1. GABLOFEN [Suspect]
     Active Substance: BACLOFEN
     Dosage: 1100 ?G, \DAY
     Route: 037
     Dates: end: 201612
  2. GABLOFEN [Suspect]
     Active Substance: BACLOFEN
     Dosage: 440 ?G, \DAY
     Route: 037
     Dates: start: 201612
  3. GABLOFEN [Suspect]
     Active Substance: BACLOFEN
     Dosage: 1199 ?G, \DAY
     Route: 037
  4. GABLOFEN [Suspect]
     Active Substance: BACLOFEN
     Dosage: 300 ?G, \DAY
     Route: 037
     Dates: start: 201612

REACTIONS (10)
  - Mechanical ventilation [Unknown]
  - Withdrawal syndrome [Unknown]
  - Malaise [Unknown]
  - Pneumonia [Unknown]
  - Infection [Unknown]
  - Pain [Unknown]
  - Device failure [Unknown]
  - Diarrhoea [Unknown]
  - Device battery issue [Unknown]
  - Emotional distress [Unknown]

NARRATIVE: CASE EVENT DATE: 2016
